FAERS Safety Report 25462440 (Version 1)
Quarter: 2025Q2

REPORT INFORMATION
  Report Type: Spontaneous
  Country: RO (occurrence: None)
  Receive Date: 20250619
  Receipt Date: 20250619
  Transmission Date: 20250716
  Serious: Yes (Hospitalization)
  Sender: FDA-CTU
  Company Number: None

PATIENT
  Age: 15 Year
  Sex: Female
  Weight: 55 kg

DRUGS (5)
  1. ZOLOFT [Suspect]
     Active Substance: SERTRALINE HYDROCHLORIDE
  2. PROZAC [Suspect]
     Active Substance: FLUOXETINE HYDROCHLORIDE
  3. FEVARIN [Suspect]
     Active Substance: FLUVOXAMINE MALEATE
  4. COD LIVER OIL [Concomitant]
     Active Substance: COD LIVER OIL
  5. MAGNESIUM [Concomitant]
     Active Substance: MAGNESIUM

REACTIONS (14)
  - Epistaxis [None]
  - Amenorrhoea [None]
  - Therapy cessation [None]
  - Depression [None]
  - Drug resistance [None]
  - Anxiety [None]
  - Self-injurious ideation [None]
  - Therapy change [None]
  - Anhedonia [None]
  - Agoraphobia [None]
  - Gastrointestinal disorder [None]
  - Chills [None]
  - Insomnia [None]
  - Irritability [None]

NARRATIVE: CASE EVENT DATE: 20230109
